FAERS Safety Report 24001489 (Version 2)
Quarter: 2024Q3

REPORT INFORMATION
  Report Type: Spontaneous
  Country: AT (occurrence: AT)
  Receive Date: 20240621
  Receipt Date: 20240708
  Transmission Date: 20241017
  Serious: Yes (Other)
  Sender: ELI LILLY AND CO
  Company Number: AT-ELI_LILLY_AND_COMPANY-AT202406005509

PATIENT
  Age: 68 Year
  Sex: Male
  Weight: 60 kg

DRUGS (4)
  1. TALTZ [Suspect]
     Active Substance: IXEKIZUMAB
     Indication: Psoriasis
     Dosage: UNK UNK, UNKNOWN
     Route: 065
     Dates: start: 202401
  2. TALTZ [Suspect]
     Active Substance: IXEKIZUMAB
     Indication: Psoriasis
     Dosage: 80 MG, OTHER, EVERY 2 WEEKS
     Route: 065
     Dates: start: 20240220
  3. TALTZ [Suspect]
     Active Substance: IXEKIZUMAB
     Indication: Hidradenitis
     Dosage: 80 MG, MONTHLY (1/M)
     Route: 065
     Dates: end: 20240610
  4. CANDESARTAN [Concomitant]
     Active Substance: CANDESARTAN
     Indication: Product used for unknown indication

REACTIONS (1)
  - Myocarditis [Unknown]
